FAERS Safety Report 25941369 (Version 3)
Quarter: 2025Q4

REPORT INFORMATION
  Report Type: Spontaneous
  Country: EU (occurrence: EU)
  Receive Date: 20251020
  Receipt Date: 20251113
  Transmission Date: 20260118
  Serious: Yes (Other)
  Sender: MERCK SHARP & DOHME LLC
  Company Number: EU-009507513-2338689

PATIENT
  Age: 81 Year
  Sex: Male
  Weight: 78 kg

DRUGS (22)
  1. KEYTRUDA [Suspect]
     Active Substance: PEMBROLIZUMAB
     Indication: Transitional cell carcinoma metastatic
     Route: 042
     Dates: start: 20250410, end: 20250711
  2. KEYTRUDA [Suspect]
     Active Substance: PEMBROLIZUMAB
     Indication: Transitional cell carcinoma metastatic
     Route: 042
     Dates: start: 20250725, end: 20250725
  3. PADCEV [Suspect]
     Active Substance: ENFORTUMAB VEDOTIN-EJFV
     Indication: Transitional cell carcinoma metastatic
     Dosage: ON DAY 1 AND DAY 8 OF A 21-DAY CYCLE
     Route: 042
     Dates: start: 20250410, end: 20250725
  4. DEXERYL [Concomitant]
     Indication: Transitional cell carcinoma
     Dosage: 1 APPLICATION TO THE SKIN PER DAY
  5. SILODOSIN [Concomitant]
     Active Substance: SILODOSIN
     Indication: Urinary tract disorder
     Dosage: 1 CAPSULE IN THE MORNING
     Route: 048
  6. PANTOPRAZOLE [Concomitant]
     Active Substance: PANTOPRAZOLE
     Indication: Prophylaxis
     Dosage: 1 TABLET IN THE EVENING
     Route: 048
  7. LIDOCAINE\PRILOCAINE [Concomitant]
     Active Substance: LIDOCAINE\PRILOCAINE
     Indication: Transitional cell carcinoma
     Dosage: 1 PATCH PRIOR TO EACH CHEMOTHERAPY SESSION
  8. ATORVASTATIN [Concomitant]
     Active Substance: ATORVASTATIN
     Indication: Cardiac disorder
     Dosage: 1 TABLET IN THE EVENING
     Route: 048
  9. AMOXICILLIN\CLAVULANIC ACID [Concomitant]
     Active Substance: AMOXICILLIN\CLAVULANIC ACID
     Indication: Bacterial infection
     Dosage: AMOXICILLIN 1G + CLAVULANIC ACID 125 MG, 1 SACHET IN THE MORNING AT LUNCHTIME AND IN THE EVENING,
     Route: 048
     Dates: start: 20250703, end: 20250708
  10. EVOLOCUMAB [Concomitant]
     Active Substance: EVOLOCUMAB
     Indication: Dyslipidaemia
     Dosage: EVERY 15 DAYS
     Route: 058
  11. PREDNISONE [Concomitant]
     Active Substance: PREDNISONE
     Indication: Transitional cell carcinoma
     Dosage: 2 TABLETS ON DAYS 2, 3, 9, AND 10 PER 21-DAY CYCLE ORAL
     Route: 048
  12. FUROSEMIDE [Concomitant]
     Active Substance: FUROSEMIDE
     Indication: Hypertension
     Route: 048
  13. LACTULOSE [Concomitant]
     Active Substance: LACTULOSE
     Indication: Constipation
     Dosage: 2 PACKETS IN THE MORNING
  14. ASPIRIN [Concomitant]
     Active Substance: ASPIRIN
     Indication: Cardiac disorder
     Dosage: 1 SACHET AT LUNCHTIME
     Route: 048
  15. RACECADOTRIL [Concomitant]
     Active Substance: RACECADOTRIL
     Indication: Diarrhoea
     Dosage: IF DIARRHEA 1 CAPSULE 3 TIMES PER DAY
     Route: 048
  16. CHOLECALCIFEROL [Concomitant]
     Active Substance: CHOLECALCIFEROL
     Indication: Vitamin D deficiency
     Dosage: 50000 IU/2ML 1 AMPOULE PER MONTH
     Route: 048
  17. ACETAMINOPHEN\CODEINE PHOSPHATE [Concomitant]
     Active Substance: ACETAMINOPHEN\CODEINE PHOSPHATE
     Indication: Pain
     Dosage: PARACETAMOL 500 MG + CODEINE PHOSPHATE 30 G 2 CAPSULES AT 8 AM, 12 PM, 4 PM AND AT BEDTIME (IF NE...
     Route: 048
  18. AMITRIPTYLINE [Concomitant]
     Active Substance: AMITRIPTYLINE
     Indication: Depression
     Dosage: 25 MG 1 TABLET IN THE EVENING
     Route: 048
  19. RAMIPRIL [Concomitant]
     Active Substance: RAMIPRIL
     Indication: Cardiac disorder
     Dosage: 1 TABLET MORNING
     Route: 048
  20. DILTIAZEM HYDROCHLORIDE [Concomitant]
     Active Substance: DILTIAZEM HYDROCHLORIDE
     Indication: Cardiac disorder
     Dosage: 1 TABLET MORNING AND EVENING
     Route: 048
  21. METFORMIN HYDROCHLORIDE [Concomitant]
     Active Substance: METFORMIN HYDROCHLORIDE
     Indication: Diabetes mellitus
     Dosage: 1 TABLET AT LUNCHTIME, TAKEN ORALLY
     Route: 048
  22. PRIMPERAN [Concomitant]
     Active Substance: METOCLOPRAMIDE HYDROCHLORIDE
     Indication: Nausea
     Dosage: 1 TABLET IF FEELING NAUSEOUS, MAXIMUM 3 PER DAY, TAKEN ORALLY.
     Route: 048

REACTIONS (2)
  - Neuropathy peripheral [Recovering/Resolving]
  - Inappropriate schedule of product administration [Unknown]

NARRATIVE: CASE EVENT DATE: 20250725
